FAERS Safety Report 20456306 (Version 9)
Quarter: 2022Q4

REPORT INFORMATION
  Report Type: Report from Study
  Country: ES (occurrence: None)
  Receive Date: 20220210
  Receipt Date: 20221026
  Transmission Date: 20230113
  Serious: Yes (Hospitalization)
  Sender: FDA-Public Use
  Company Number: ES-ROCHE-3015051

PATIENT
  Age: 79 Year
  Sex: Female
  Weight: 40 kg

DRUGS (7)
  1. ATEZOLIZUMAB [Suspect]
     Active Substance: ATEZOLIZUMAB
     Indication: Breast cancer
     Dosage: ON 04/JAN/2022, RECEIVED LAST DOSE OF ATEZOLIZUMAB (IV) PRIOR TO SERIOUS ADVERSE EVENT (SAE)?NO OF C
     Route: 041
     Dates: start: 20210312
  2. PERTUZUMAB [Suspect]
     Active Substance: PERTUZUMAB
     Indication: Breast cancer
     Dosage: ON 14/DEC/2021, RECEIVED LAST DOSE 420 MG OF PERTUZUMAB (IV) PRIOR TO SERIOUS ADVERSE EVENT (SAE)?NO
     Route: 042
     Dates: start: 20210831, end: 20211214
  3. TRASTUZUMAB [Suspect]
     Active Substance: TRASTUZUMAB
     Indication: Breast cancer
     Dosage: ON 14/DEC/2021, RECEIVED LAST DOSE 276 MG, 420 MG OF TRASTUZUMAB (IV) PRIOR TO SERIOUS ADVERSE EVENT
     Route: 041
     Dates: start: 20210831
  4. PERTUZUMAB\TRASTUZUMAB [Suspect]
     Active Substance: PERTUZUMAB\TRASTUZUMAB
     Indication: Breast cancer
     Dosage: ON 04/DEC/2021, RECEIVED LAST DOSE (600/600 MG) OF TRASTUZUMAB (IV) PRIOR TO SERIOUS ADVERSE EVENT (
     Route: 058
     Dates: start: 20220104
  5. DOXORUBICIN [Suspect]
     Active Substance: DOXORUBICIN
     Indication: Breast cancer
     Route: 042
     Dates: start: 20210312
  6. CYCLOPHOSPHAMIDE [Suspect]
     Active Substance: CYCLOPHOSPHAMIDE
     Indication: Breast cancer
     Route: 042
     Dates: start: 20210312
  7. PACLITAXEL [Suspect]
     Active Substance: PACLITAXEL
     Indication: Breast cancer
     Route: 042
     Dates: start: 20210517

REACTIONS (1)
  - Acute kidney injury [Recovered/Resolved]

NARRATIVE: CASE EVENT DATE: 20220125
